FAERS Safety Report 18779940 (Version 1)
Quarter: 2021Q1

REPORT INFORMATION
  Report Type: Report from Study
  Country: None (occurrence: US)
  Receive Date: 20210125
  Receipt Date: 20210125
  Transmission Date: 20210419
  Serious: Yes (Death)
  Sender: FDA-Public Use
  Company Number: US-ABBVIE-21K-163-3743656-00

PATIENT
  Age: 73 Year
  Sex: Male

DRUGS (2)
  1. SPRYCEL [Concomitant]
     Active Substance: DASATINIB
     Indication: PRODUCT USED FOR UNKNOWN INDICATION
     Route: 048
     Dates: start: 20201215
  2. VENCLEXTA [Suspect]
     Active Substance: VENETOCLAX
     Indication: LEUKAEMIA
     Route: 048
     Dates: start: 20200317

REACTIONS (1)
  - Death [Fatal]

NARRATIVE: CASE EVENT DATE: 20210120
